FAERS Safety Report 4652944-3 (Version None)
Quarter: 2005Q2

REPORT INFORMATION
  Report Type: 
  Country: None (occurrence: None)
  Receive Date: 20050503
  Receipt Date: 20050422
  Transmission Date: 20051028
  Serious: Yes (Life-Threatening, Other)
  Sender: FDA-Public Use
  Company Number: MC200500387

PATIENT
  Sex: 0

DRUGS (5)
  1. ANGIOMAX [Suspect]
     Dosage: 0.75 MG/KG , BOLUS, IV BOLUS
     Route: 040
  2. BETA BLOCKING AGENTS [Concomitant]
  3. PLAVIX [Concomitant]
  4. ACETYLSALICYLIC ACID SRT [Concomitant]
  5. STATINS [Concomitant]

REACTIONS (3)
  - BRADYCARDIA [None]
  - CARDIAC ARREST [None]
  - HYPOTENSION [None]
